FAERS Safety Report 22323647 (Version 1)
Quarter: 2023Q2

REPORT INFORMATION
  Report Type: Spontaneous
  Country: US (occurrence: None)
  Receive Date: 20230512
  Receipt Date: 20230512
  Transmission Date: 20230721
  Serious: Yes (Other)
  Sender: FDA-Public Use
  Company Number: None

PATIENT
  Age: 33 Year
  Sex: Male
  Weight: 125.55 kg

DRUGS (3)
  1. CABENUVA [Suspect]
     Active Substance: CABOTEGRAVIR\RILPIVIRINE
     Indication: HIV infection
  2. vitamin d3 10,000 iu daily [Concomitant]
  3. 1g fish oil daily [Concomitant]

REACTIONS (5)
  - Injection site pain [None]
  - Loss of personal independence in daily activities [None]
  - Gait inability [None]
  - Dysstasia [None]
  - Sitting disability [None]

NARRATIVE: CASE EVENT DATE: 20230407
